FAERS Safety Report 9806349 (Version 3)
Quarter: 2014Q1

REPORT INFORMATION
  Report Type: Spontaneous
  Country: MX (occurrence: None)
  Receive Date: 20140107
  Receipt Date: 20140131
  Transmission Date: 20141002
  Serious: Yes (Death, Other)
  Sender: FDA-Public Use
  Company Number: AUR-APL-2014-00058

PATIENT
  Age: 21 Year
  Sex: Male

DRUGS (10)
  1. CEFTRIAXONE (CEFTRIAXONE) [Suspect]
     Indication: HISTOPLASMOSIS
     Dosage: 2 GM (1 IN 12 HR)
  2. CIPROFLOXACIN (CIPROFLOXACIN) [Suspect]
     Indication: HISTOPLASMOSIS
     Dosage: 1000 MG (500 MG, 1 IN 12 HR)
  3. CLARITHROMYCIN (CLARITHROMYCIN) [Suspect]
     Indication: HISTOPLASMOSIS
     Dosage: 1000 MG (500 MG, 1 IN 12 HR)
     Route: 042
  4. TRIMETHOPRIM SULFAMETHOXAZOLE (BACTRIM) [Suspect]
     Indication: HISTOPLASMOSIS
  5. RIFAMPICIN (RIFAMPICIN) [Suspect]
     Indication: HISTOPLASMOSIS
     Dosage: (120 MG, 1 D)
  6. ISONIAZID (ISONIAZID) [Suspect]
     Indication: HISTOPLASMOSIS
     Dosage: (50 MG, 1 D)
  7. PYRAZINAMIDE (PYRAZINAMIDE) [Suspect]
     Indication: HISTOPLASMOSIS
     Dosage: (300 MG, 1 D)
  8. MOXIFLOXACIN [Suspect]
     Indication: HISTOPLASMOSIS
     Dosage: 800 MG (400 MG, 1 IN 12 HR)
  9. AMPHOTERICIN B (AMPHOTERICIN B) [Suspect]
     Indication: HISTOPLASMOSIS
     Dosage: 3 MG (1 MG, 1 IN 8 HR)
  10. METAMIZOLE SODIUM [Suspect]
     Indication: HISTOPLASMOSIS
     Dosage: 12 GM (4 GM, 1 IN 8 HR)

REACTIONS (1)
  - General physical health deterioration [None]
